FAERS Safety Report 17032138 (Version 1)
Quarter: 2019Q4

REPORT INFORMATION
  Report Type: Spontaneous
  Country: US (occurrence: US)
  Receive Date: 20191114
  Receipt Date: 20191114
  Transmission Date: 20200122
  Serious: Yes (Other)
  Sender: FDA-Public Use
  Company Number: US-PFIZER INC-2019243107

PATIENT
  Age: 74 Year

DRUGS (1)
  1. PRISTIQ EXTENDED-RELEASE [Suspect]
     Active Substance: DESVENLAFAXINE SUCCINATE
     Dosage: 100 G, UNK

REACTIONS (4)
  - Product prescribing error [Unknown]
  - Self-injurious ideation [Unknown]
  - Depressed mood [Unknown]
  - Feeling abnormal [Unknown]
